FAERS Safety Report 24386096 (Version 1)
Quarter: 2024Q4

REPORT INFORMATION
  Report Type: Spontaneous
  Country: ES (occurrence: ES)
  Receive Date: 20241001
  Receipt Date: 20241001
  Transmission Date: 20250115
  Serious: Yes (Other)
  Sender: B BRAUN
  Company Number: ES-B.Braun Medical Inc.-2162296

PATIENT
  Sex: Male

DRUGS (3)
  1. DEXTROSE [Suspect]
     Active Substance: DEXTROSE MONOHYDRATE
  2. POTASSIUM CHLORIDE [Suspect]
     Active Substance: POTASSIUM CHLORIDE
  3. SODIUM CHLORIDE [Suspect]
     Active Substance: SODIUM CHLORIDE

REACTIONS (4)
  - Administration site oedema [Unknown]
  - Drug interaction [Unknown]
  - Catheter site extravasation [Unknown]
  - Skin ulcer [Unknown]
